FAERS Safety Report 9499586 (Version 2)
Quarter: 2013Q4

REPORT INFORMATION
  Report Type: Spontaneous
  Country: US (occurrence: US)
  Receive Date: 20130905
  Receipt Date: 20131014
  Transmission Date: 20140711
  Serious: No
  Sender: FDA-Public Use
  Company Number: US-PFIZER INC-2013249476

PATIENT
  Age: 76 Year
  Sex: Male

DRUGS (1)
  1. PRISTIQ [Suspect]
     Dosage: 50 MG, 2X/DAY

REACTIONS (1)
  - Depression [Unknown]
